FAERS Safety Report 5245357-7 (Version None)
Quarter: 2007Q1

REPORT INFORMATION
  Report Type: 
  Country: None (occurrence: None)
  Receive Date: 20070223
  Receipt Date: 20070213
  Transmission Date: 20070707
  Serious: Yes (Hospitalization)
  Sender: FDA-Public Use
  Company Number: AUWYE636413FEB07

PATIENT
  Age: 16 Year

DRUGS (1)
  1. EFFEXOR XR [Suspect]
     Route: 048
     Dates: start: 20060101

REACTIONS (5)
  - BLOOD CREATININE INCREASED [None]
  - FEELING JITTERY [None]
  - HEADACHE [None]
  - RENAL IMPAIRMENT [None]
  - VOMITING [None]
